FAERS Safety Report 6238000-1 (Version None)
Quarter: 2009Q2

REPORT INFORMATION
  Report Type: 
  Country: None (occurrence: None)
  Receive Date: 20090618
  Receipt Date: 20090618
  Transmission Date: 20091009
  Serious: Yes (Life-Threatening)
  Sender: FDA-Public Use
  Company Number: None

PATIENT
  Sex: Male
  Weight: 83.9154 kg

DRUGS (2)
  1. TRAZODONE HCL [Suspect]
     Indication: SLEEP DISORDER THERAPY
     Dosage: 150 MG ONCE AT NIGHT PO OVER 5 YEARS
     Route: 048
  2. TRAZODONE HCL [Suspect]
     Indication: SLEEP DISORDER THERAPY
     Dosage: 150 MG ONCE AT NIGHT PO OVER 10 YEARS
     Route: 048

REACTIONS (5)
  - CHOKING [None]
  - FOREIGN BODY TRAUMA [None]
  - MEDICATION ERROR [None]
  - PRODUCT SHAPE ISSUE [None]
  - RETCHING [None]
